FAERS Safety Report 13930380 (Version 1)
Quarter: 2017Q3

REPORT INFORMATION
  Report Type: Spontaneous
  Country: DK (occurrence: DK)
  Receive Date: 20170901
  Receipt Date: 20170901
  Transmission Date: 20171127
  Serious: Yes (Other)
  Sender: FDA-Public Use
  Company Number: DK-NOVOPROD-556970

PATIENT
  Age: 82 Year
  Sex: Female
  Weight: 165 kg

DRUGS (2)
  1. PENICILLIN                         /00000901/ [Concomitant]
     Active Substance: PENICILLIN G
     Dosage: UNK
     Route: 065
  2. TRESIBA PENFILL [Suspect]
     Active Substance: INSULIN DEGLUDEC
     Indication: PRODUCT USED FOR UNKNOWN INDICATION
     Dosage: 7 IU, QD
     Route: 065
     Dates: start: 201701

REACTIONS (3)
  - Muscle spasms [Recovered/Resolved]
  - Blood glucose decreased [Recovered/Resolved]
  - Parathyroidectomy [Unknown]

NARRATIVE: CASE EVENT DATE: 20170717
